FAERS Safety Report 8339490-0 (Version None)
Quarter: 2012Q2

REPORT INFORMATION
  Report Type: 
  Country: None (occurrence: None)
  Receive Date: 20120507
  Receipt Date: 20120427
  Transmission Date: 20120825
  Serious: Yes (Hospitalization)
  Sender: FDA-Public Use
  Company Number: PHHY2010US55756

PATIENT
  Sex: Female
  Weight: 92.97 kg

DRUGS (3)
  1. GLEEVEC [Suspect]
     Dosage: 400 MG, DAILY
     Route: 048
     Dates: start: 20110101
  2. GLEEVEC [Suspect]
     Dosage: 100 MG,
     Route: 048
  3. GLEEVEC [Suspect]
     Indication: CHRONIC MYELOID LEUKAEMIA
     Dosage: 400 MG, DAILY
     Route: 048
     Dates: start: 20070101

REACTIONS (11)
  - STOMATITIS [None]
  - HAEMATOCHEZIA [None]
  - GASTROOESOPHAGEAL REFLUX DISEASE [None]
  - MUSCLE SPASMS [None]
  - NAUSEA [None]
  - MYOCARDIAL INFARCTION [None]
  - CHEST DISCOMFORT [None]
  - PAIN IN EXTREMITY [None]
  - THROAT TIGHTNESS [None]
  - VOMITING [None]
  - MUSCULOSKELETAL STIFFNESS [None]
